FAERS Safety Report 19367585 (Version 1)
Quarter: 2021Q2

REPORT INFORMATION
  Report Type: Spontaneous
  Country: US (occurrence: US)
  Receive Date: 20210602
  Receipt Date: 20210602
  Transmission Date: 20210717
  Serious: Yes (Other)
  Sender: FDA-Public Use
  Company Number: US-FRESENIUS KABI-FK202105570

PATIENT
  Age: 54 Year
  Sex: Male
  Weight: 110.3 kg

DRUGS (1)
  1. HEPARIN SODIUM INJECTION, USP [Suspect]
     Active Substance: HEPARIN SODIUM
     Indication: ANTICOAGULANT THERAPY
     Dosage: 14,000 UNITS ADMINISTERED OVER 1.5 HOURS
     Route: 042
     Dates: start: 20210527, end: 20210527

REACTIONS (2)
  - Drug effect less than expected [Unknown]
  - Thrombosis [Recovering/Resolving]

NARRATIVE: CASE EVENT DATE: 20210527
